FAERS Safety Report 6706999-2 (Version None)
Quarter: 2010Q2

REPORT INFORMATION
  Report Type: 
  Country: None (occurrence: None)
  Receive Date: 20100503
  Receipt Date: 20100426
  Transmission Date: 20101027
  Serious: Yes (Other)
  Sender: FDA-Public Use
  Company Number: US-BAYER-201014733BCC

PATIENT
  Age: 69 Year
  Sex: Female
  Weight: 74 kg

DRUGS (8)
  1. ASPIRIN [Suspect]
     Indication: PROPHYLAXIS
     Dosage: TOTAL DAILY DOSE: 81 MG  UNIT DOSE: 81 MG
     Route: 048
     Dates: start: 20010101, end: 20100301
  2. ARCTIC WONDER SOFTGELS [Suspect]
     Indication: VITAMIN SUPPLEMENTATION
     Dosage: TOTAL DAILY DOSE: 1 DF
     Route: 048
     Dates: start: 20100301
  3. ATENOLOL [Concomitant]
     Route: 065
  4. ACTOPLUS MET [Concomitant]
     Route: 065
  5. LOTREL [Concomitant]
     Route: 065
  6. SWANSON MULTIVITAMIN [Concomitant]
     Route: 065
  7. SWANSON B-VITAMINS [Concomitant]
     Route: 065
  8. NIACIN [Concomitant]
     Route: 065

REACTIONS (6)
  - BLOOD CHOLESTEROL INCREASED [None]
  - BLOOD GLUCOSE INCREASED [None]
  - BLOOD PRESSURE INCREASED [None]
  - DIARRHOEA [None]
  - HAEMATOCHEZIA [None]
  - HAEMORRHOIDAL HAEMORRHAGE [None]
